FAERS Safety Report 6480917-7 (Version None)
Quarter: 2009Q4

REPORT INFORMATION
  Report Type: 
  Country: None (occurrence: None)
  Receive Date: 20091208
  Receipt Date: 20091127
  Transmission Date: 20100525
  Serious: Yes (Other)
  Sender: FDA-Public Use
  Company Number: PHHY2009JP47218

PATIENT
  Age: 65 Year
  Sex: Female

DRUGS (3)
  1. DIOVAN [Suspect]
     Indication: HYPERTENSION
     Dosage: 120 MG DAILY
     Route: 048
     Dates: start: 20091019
  2. ARTIST [Concomitant]
     Indication: HYPERTENSION
     Dosage: UNK
     Route: 048
  3. ARTIST [Concomitant]
     Dosage: 15 MG DAILY
     Route: 048
     Dates: start: 20091019

REACTIONS (4)
  - DEPRESSED LEVEL OF CONSCIOUSNESS [None]
  - DYSARTHRIA [None]
  - SOMNOLENCE [None]
  - THROAT TIGHTNESS [None]
